FAERS Safety Report 8844373 (Version 2)
Quarter: 2012Q4

REPORT INFORMATION
  Report Type: 
  Country: US (occurrence: US)
  Receive Date: 20121017
  Receipt Date: 20121126
  Transmission Date: 20130627
  Serious: Yes (Other)
  Sender: FDA-Public Use
  Company Number: US-BAYER-2012-106825

PATIENT
  Age: 43 Year
  Sex: Female
  Weight: 68.93 kg

DRUGS (2)
  1. MIRENA [Suspect]
     Indication: CONTRACEPTION
     Dosage: 20 mcg/24hr, CONT
     Route: 015
     Dates: start: 20111209, end: 20120112
  2. ANAESTHETICS [Concomitant]
     Dosage: UNK
     Dates: start: 20111209, end: 20111209

REACTIONS (2)
  - Device dislocation [None]
  - Device difficult to use [None]
